FAERS Safety Report 13059579 (Version 1)
Quarter: 2016Q4

REPORT INFORMATION
  Report Type: Spontaneous
  Country: US (occurrence: US)
  Receive Date: 20161223
  Receipt Date: 20161223
  Transmission Date: 20170207
  Serious: Yes (Other)
  Sender: FDA-Public Use
  Company Number: US-ROCHE-1032030

PATIENT
  Age: 53 Year
  Sex: Female
  Weight: 69.46 kg

DRUGS (2)
  1. ZELBORAF [Suspect]
     Active Substance: VEMURAFENIB
     Indication: MALIGNANT MELANOMA
     Route: 048
     Dates: start: 20111104
  2. ZELBORAF [Suspect]
     Active Substance: VEMURAFENIB
     Dosage: SLOW ESCALATION OF DOSE
     Route: 048
     Dates: start: 20111207

REACTIONS (1)
  - Stevens-Johnson syndrome [Recovered/Resolved]

NARRATIVE: CASE EVENT DATE: 20111112
